FAERS Safety Report 4501953-3 (Version None)
Quarter: 2004Q4

REPORT INFORMATION
  Report Type: 
  Country: None (occurrence: None)
  Receive Date: 20041109
  Receipt Date: 20041026
  Transmission Date: 20050328
  Serious: Yes (Disabling, Other)
  Sender: FDA-Public Use
  Company Number: 2004238548CH

PATIENT
  Age: 63 Year
  Sex: Female

DRUGS (3)
  1. BEXTRA [Suspect]
     Indication: BACK PAIN
     Dosage: 20 MG, QD
     Dates: start: 20040804, end: 20040809
  2. PREMELLA (ESTROGENS CONJUGATED) [Concomitant]
  3. AGOPTON [Concomitant]

REACTIONS (4)
  - HYPERSENSITIVITY [None]
  - POLYP [None]
  - PRURITUS [None]
  - RASH MACULO-PAPULAR [None]
